FAERS Safety Report 17258744 (Version 2)
Quarter: 2020Q1

REPORT INFORMATION
  Report Type: Report from Study
  Country: US (occurrence: US)
  Receive Date: 20200110
  Receipt Date: 20200124
  Transmission Date: 20200409
  Serious: Yes (Hospitalization)
  Sender: FDA-Public Use
  Company Number: US-ACTELION-A-NJ2020-200308

PATIENT
  Age: 2 Year
  Sex: Female

DRUGS (4)
  1. TRACLEER [Suspect]
     Active Substance: BOSENTAN
     Indication: PULMONARY ARTERIAL HYPERTENSION
     Dosage: 32 MG, BID
     Route: 048
     Dates: start: 20190607
  2. PREDNISONE. [Concomitant]
     Active Substance: PREDNISONE
  3. SIROLIMUS. [Concomitant]
     Active Substance: SIROLIMUS
  4. TACROLIMUS. [Concomitant]
     Active Substance: TACROLIMUS

REACTIONS (7)
  - Gastrointestinal tube insertion [Unknown]
  - Pulmonary vein occlusion [Unknown]
  - Respiratory syncytial virus infection [Unknown]
  - Cough [Unknown]
  - Pyrexia [Unknown]
  - Vomiting [Unknown]
  - Unevaluable event [Unknown]

NARRATIVE: CASE EVENT DATE: 20190828
